FAERS Safety Report 5200399-2 (Version None)
Quarter: 2007Q1

REPORT INFORMATION
  Report Type: 
  Country: None (occurrence: None)
  Receive Date: 20070105
  Receipt Date: 20061228
  Transmission Date: 20070707
  Serious: Yes (Other)
  Sender: FDA-Public Use
  Company Number: US-PFIZER INC-2007000640

PATIENT
  Sex: Female

DRUGS (3)
  1. LIPITOR [Suspect]
  2. CYMBALTA [Concomitant]
  3. CRESTOR [Concomitant]

REACTIONS (4)
  - ABASIA [None]
  - BURNING SENSATION [None]
  - GAIT DISTURBANCE [None]
  - PAIN IN EXTREMITY [None]
